FAERS Safety Report 6968803-7 (Version None)
Quarter: 2010Q3

REPORT INFORMATION
  Report Type: 
  Country: None (occurrence: None)
  Receive Date: 20100823
  Receipt Date: 20100526
  Transmission Date: 20110219
  Serious: No
  Sender: FDA-Public Use
  Company Number: 012674

PATIENT
  Sex: Female
  Weight: 115.2 kg

DRUGS (8)
  1. CIMZIA [Suspect]
     Indication: CROHN'S DISEASE
     Dosage: (SUBCUTANEOUS)
     Route: 058
     Dates: start: 20090101
  2. PREDNISONE [Concomitant]
  3. LEVONOGRESTREL [Concomitant]
  4. SPIRONOLACTONE [Concomitant]
  5. FERROUS SULPHATE /00023503/ [Concomitant]
  6. MULTIVITAMINS AND IRON [Concomitant]
  7. VITAMIN D [Concomitant]
  8. CALCIUM [Concomitant]

REACTIONS (1)
  - DRUG INEFFECTIVE [None]
